FAERS Safety Report 15673486 (Version 1)
Quarter: 2018Q4

REPORT INFORMATION
  Report Type: Spontaneous
  Country: FR (occurrence: FR)
  Receive Date: 20181129
  Receipt Date: 20181129
  Transmission Date: 20190205
  Serious: Yes (Death, Other)
  Sender: FDA-Public Use
  Company Number: FR-PFIZER INC-2018488996

PATIENT
  Age: 68 Year
  Sex: Male
  Weight: 84 kg

DRUGS (3)
  1. XARELTO [Interacting]
     Active Substance: RIVAROXABAN
     Indication: ATRIAL FIBRILLATION
     Dosage: 20 MG, 1X/DAY
     Route: 048
  2. CORDARONE [Suspect]
     Active Substance: AMIODARONE HYDROCHLORIDE
     Indication: ATRIAL FIBRILLATION
     Dosage: 100 MG, 1X/DAY
     Route: 048
     Dates: start: 20180525
  3. LIPANTHYL [Interacting]
     Active Substance: FENOFIBRATE
     Indication: LIPIDS ABNORMAL
     Dosage: 200 MG, 1X/DAY
     Route: 048

REACTIONS (3)
  - Drug interaction [Unknown]
  - Subdural haematoma [Fatal]
  - Anticoagulation drug level increased [Fatal]

NARRATIVE: CASE EVENT DATE: 20180612
